FAERS Safety Report 8415424-5 (Version None)
Quarter: 2012Q2

REPORT INFORMATION
  Report Type: 
  Country: None (occurrence: None)
  Receive Date: 20120530
  Receipt Date: 20120516
  Transmission Date: 20120825
  Serious: Yes (Hospitalization)
  Sender: FDA-Public Use
  Company Number: DKLU1080475

PATIENT
  Age: 11 Month
  Sex: Male

DRUGS (1)
  1. SABRIL [Suspect]
     Indication: INFANTILE SPASMS
     Dosage: 600 MG, 2 IN 1 D, ORAL
     Route: 048
     Dates: start: 20120116

REACTIONS (1)
  - GASTRIC DISORDER [None]
